FAERS Safety Report 10990477 (Version 2)
Quarter: 2020Q1

REPORT INFORMATION
  Report Type: Spontaneous
  Country: US (occurrence: US)
  Receive Date: 20150406
  Receipt Date: 20200331
  Transmission Date: 20200409
  Serious: Yes (Hospitalization, Other)
  Sender: FDA-Public Use
  Company Number: US-ASTRAZENECA-2015SE02733

PATIENT
  Age: 21212 Day
  Sex: Male
  Weight: 145.2 kg

DRUGS (29)
  1. BYETTA [Suspect]
     Active Substance: EXENATIDE
     Indication: DIABETES MELLITUS
     Route: 065
     Dates: start: 20070926, end: 20100918
  2. OMEPRAZOLE. [Concomitant]
     Active Substance: OMEPRAZOLE
  3. BYETTA [Suspect]
     Active Substance: EXENATIDE
     Indication: DIABETES MELLITUS
     Dosage: UNK
     Route: 065
     Dates: start: 20070926, end: 201010
  4. BYETTA [Suspect]
     Active Substance: EXENATIDE
     Indication: DIABETES MELLITUS
     Route: 065
     Dates: start: 20070926, end: 20071201
  5. BYETTA [Suspect]
     Active Substance: EXENATIDE
     Indication: DIABETES MELLITUS
     Route: 065
     Dates: start: 20071202, end: 20081211
  6. HUMALOG [Concomitant]
     Active Substance: INSULIN LISPRO
  7. CITALOPRAM HYDROCHLORIDE [Concomitant]
     Active Substance: CITALOPRAM HYDROCHLORIDE
  8. ADVAIR DISKUS [Concomitant]
     Active Substance: FLUTICASONE PROPIONATE\SALMETEROL XINAFOATE
  9. BENZONATATE. [Concomitant]
     Active Substance: BENZONATATE
  10. AVANDIA [Concomitant]
     Active Substance: ROSIGLITAZONE MALEATE
  11. AMOXICILLIN. [Concomitant]
     Active Substance: AMOXICILLIN
  12. SPECTAZOLE [Concomitant]
     Active Substance: ECONAZOLE NITRATE
  13. BYETTA [Suspect]
     Active Substance: EXENATIDE
     Indication: DIABETES MELLITUS
     Route: 065
     Dates: start: 20100918, end: 201010
  14. METFORMIN [Concomitant]
     Active Substance: METFORMIN HYDROCHLORIDE
  15. LISINOPRIL. [Concomitant]
     Active Substance: LISINOPRIL
  16. NABUMETONE. [Concomitant]
     Active Substance: NABUMETONE
  17. TAMIFLU [Concomitant]
     Active Substance: OSELTAMIVIR PHOSPHATE
  18. TRICOR [Concomitant]
     Active Substance: FENOFIBRATE
  19. GLYBURIDE. [Concomitant]
     Active Substance: GLYBURIDE
  20. SYMBICORT [Concomitant]
     Active Substance: BUDESONIDE\FORMOTEROL FUMARATE DIHYDRATE
  21. AZITHROMYCIN ANHYDROUS. [Concomitant]
     Active Substance: AZITHROMYCIN ANHYDROUS
  22. PREDNISONE. [Concomitant]
     Active Substance: PREDNISONE
  23. VERAPAMIL [Concomitant]
     Active Substance: VERAPAMIL HYDROCHLORIDE
  24. BYETTA [Suspect]
     Active Substance: EXENATIDE
     Indication: DIABETES MELLITUS
     Route: 065
     Dates: start: 20100819, end: 20100917
  25. QUINAPRIL. [Concomitant]
     Active Substance: QUINAPRIL
  26. LANTUS [Concomitant]
     Active Substance: INSULIN GLARGINE
  27. ALBUTEROL. [Concomitant]
     Active Substance: ALBUTEROL
  28. MOTRIN [Concomitant]
     Active Substance: IBUPROFEN
  29. LIPITOR [Concomitant]
     Active Substance: ATORVASTATIN CALCIUM

REACTIONS (1)
  - Pancreatic carcinoma [Unknown]

NARRATIVE: CASE EVENT DATE: 20120115
